FAERS Safety Report 7288166-X (Version None)
Quarter: 2011Q1

REPORT INFORMATION
  Report Type: 
  Country: None (occurrence: None)
  Receive Date: 20110211
  Receipt Date: 20110202
  Transmission Date: 20110831
  Serious: Yes (Hospitalization, Other)
  Sender: FDA-Public Use
  Company Number: US-ROCHE-462575

PATIENT
  Sex: Female
  Weight: 61.2 kg

DRUGS (2)
  1. ACCUTANE [Suspect]
     Indication: ACNE
     Route: 048
     Dates: start: 20010822, end: 20020301
  2. ACCUTANE [Suspect]
     Route: 048
     Dates: start: 20020801, end: 20021201

REACTIONS (13)
  - BREAST MASS [None]
  - INFLAMMATORY BOWEL DISEASE [None]
  - PROCTITIS ULCERATIVE [None]
  - CERVICAL SPINE FLATTENING [None]
  - SCOLIOSIS [None]
  - PALPITATIONS [None]
  - COLITIS [None]
  - ANXIETY [None]
  - DEPRESSION [None]
  - ATRIAL SEPTAL DEFECT [None]
  - GASTROENTERITIS SALMONELLA [None]
  - CROHN'S DISEASE [None]
  - RHEUMATOID ARTHRITIS [None]
